FAERS Safety Report 10034017 (Version 1)
Quarter: 2014Q1

REPORT INFORMATION
  Report Type: Other
  Country: DE (occurrence: DE)
  Receive Date: 20140325
  Receipt Date: 20140325
  Transmission Date: 20141002
  Serious: Yes (Other)
  Sender: FDA-Public Use
  Company Number: DE-LUPIN PHARMACEUTICALS INC.-2014-00856

PATIENT
  Age: 35 Year
  Sex: Female
  Weight: 78 kg

DRUGS (3)
  1. LAMOTRIGIN [Suspect]
     Indication: EPILEPSY
     Route: 048
  2. LAMOTRIGIN [Suspect]
     Dosage: 350MG OR DOSAGE INCREASING AT THE END 150-100-150 MG/D
     Route: 048
     Dates: start: 20120307, end: 20121118
  3. FOLSAURE [Concomitant]
     Indication: PROPHYLAXIS OF NEURAL TUBE DEFECT
     Route: 048

REACTIONS (2)
  - Premature rupture of membranes [Recovered/Resolved]
  - Exposure during pregnancy [Unknown]
